FAERS Safety Report 5134337-8 (Version None)
Quarter: 2006Q4

REPORT INFORMATION
  Report Type: 
  Country: None (occurrence: None)
  Receive Date: 20060831
  Receipt Date: 20051101
  Transmission Date: 20070319
  Serious: Yes (Hospitalization)
  Sender: FDA-Public Use
  Company Number: 245899

PATIENT
  Age: 81 Year
  Sex: Female
  Weight: 77.1 kg

DRUGS (9)
  1. NOVOLIN N [Suspect]
     Indication: INSULIN-REQUIRING TYPE II DIABETES MELLITUS
     Dosage: SEE IMAGE
     Route: 058
     Dates: start: 20040801
  2. NASONEX [Concomitant]
  3. FUROSEMIDE [Concomitant]
  4. ALBUTEROL [Concomitant]
  5. LISINOPRIL [Concomitant]
  6. ADVAIR (SALMETEREOL XINAFOATE, FLUTICASONE PROPIONATE) [Concomitant]
  7. ZOLOFT [Concomitant]
  8. WARFARIN SODIUM [Concomitant]
  9. MICRONASE [Concomitant]

REACTIONS (1)
  - HYPOGLYCAEMIC COMA [None]
